FAERS Safety Report 5233988-X (Version None)
Quarter: 2007Q1

REPORT INFORMATION
  Report Type: 
  Country: None (occurrence: None)
  Receive Date: 20070208
  Receipt Date: 20070201
  Transmission Date: 20070707
  Serious: Yes (Hospitalization)
  Sender: FDA-Public Use
  Company Number: HQWYE278202FEB07

PATIENT
  Age: 75 Year
  Sex: Male

DRUGS (6)
  1. INIPOMP [Suspect]
     Indication: PROPHYLAXIS
     Route: 048
     Dates: start: 20061101, end: 20061112
  2. PLAVIX [Concomitant]
     Indication: PROPHYLAXIS
     Route: 048
  3. VASTAREL [Concomitant]
     Indication: PROPHYLAXIS
     Dosage: UNKNOWN
     Route: 065
  4. ALDACTAZINE [Suspect]
     Indication: ESSENTIAL HYPERTENSION
     Dosage: ^DF^
     Route: 048
     Dates: start: 20061101, end: 20061112
  5. DIGOXIN [Concomitant]
     Indication: ATRIAL FIBRILLATION
     Dosage: ^1 DF^ DAILY
     Route: 048
  6. DIGOXIN [Concomitant]
     Indication: ATRIAL FLUTTER

REACTIONS (3)
  - HYPONATRAEMIA [None]
  - URINARY RETENTION [None]
  - VOMITING [None]
